FAERS Safety Report 4299560-3 (Version None)
Quarter: 2004Q1

REPORT INFORMATION
  Report Type: 
  Country: None (occurrence: None)
  Receive Date: 20040217
  Receipt Date: 20040209
  Transmission Date: 20041129
  Serious: Yes (Hospitalization)
  Sender: FDA-Public Use
  Company Number: 2004-02-0468

PATIENT
  Age: 45 Year
  Sex: Male

DRUGS (2)
  1. REBETOL [Suspect]
     Indication: HEPATITIS C
     Dosage: ORAL
     Route: 048
     Dates: start: 20030301, end: 20030101
  2. INTRON A [Suspect]
     Indication: HEPATITIS C
     Dosage: 6 MU BIW INTRAMUSCULAR
     Route: 030
     Dates: start: 20030301, end: 20040201

REACTIONS (3)
  - EMBOLISM [None]
  - INTERMITTENT CLAUDICATION [None]
  - PAIN IN EXTREMITY [None]
